FAERS Safety Report 6974743-X (Version None)
Quarter: 2010Q3

REPORT INFORMATION
  Report Type: 
  Country: None (occurrence: None)
  Receive Date: 20100909
  Receipt Date: 20081217
  Transmission Date: 20110219
  Serious: No
  Sender: FDA-Public Use
  Company Number: US-WYE-H07349208

PATIENT
  Sex: Female
  Weight: 95.34 kg

DRUGS (12)
  1. PRISTIQ [Suspect]
     Indication: DEPRESSION
     Route: 048
     Dates: start: 20081001
  2. PRISTIQ [Suspect]
     Route: 048
     Dates: start: 20081101
  3. NEXIUM [Concomitant]
  4. INDENOLOL HYDROCHLORIDE [Concomitant]
  5. ULTRAM [Concomitant]
  6. ABILIFY [Concomitant]
     Indication: DEPRESSION
     Dosage: UNKNOWN
     Dates: start: 20081215
  7. LYRICA [Concomitant]
  8. AMBIEN CR [Concomitant]
  9. TRAZODONE HCL [Concomitant]
  10. KLONOPIN [Concomitant]
  11. SOLIFENACIN SUCCINATE [Concomitant]
  12. FLEXERIL [Concomitant]

REACTIONS (2)
  - ARTHRALGIA [None]
  - SWELLING [None]
